FAERS Safety Report 4323728-0 (Version None)
Quarter: 2004Q1

REPORT INFORMATION
  Report Type: 
  Country: None (occurrence: None)
  Receive Date: 20040323
  Receipt Date: 20040312
  Transmission Date: 20041129
  Serious: Yes (Other)
  Sender: FDA-Public Use
  Company Number: 2004-DE-01219GD

PATIENT
  Age: 8 Month

DRUGS (2)
  1. CYCLOPHOSPHAMIDE [Suspect]
     Indication: BONE MARROW TRANSPLANT
     Dosage: 200 MG/KG I.V. INFUSION IN DIVIDED DOSES OVER 4 DAYS, IV
     Route: 042
  2. BUSULFAN [Suspect]
     Indication: BONE MARROW TRANSPLANT
     Dosage: 8 MG/KG P.O. IN DIVIDED DOSES OVER 4DAYS, PO
     Route: 048

REACTIONS (1)
  - VENOOCCLUSIVE LIVER DISEASE [None]
